FAERS Safety Report 8012767-4 (Version None)
Quarter: 2011Q4

REPORT INFORMATION
  Report Type: 
  Country: None (occurrence: None)
  Receive Date: 20111229
  Receipt Date: 20111220
  Transmission Date: 20120403
  Serious: Yes (Hospitalization, Disabling, Other)
  Sender: FDA-Public Use
  Company Number: US-BAYER-201036062NA

PATIENT
  Age: 30 Year
  Sex: Female
  Weight: 79.365 kg

DRUGS (28)
  1. YASMIN [Suspect]
  2. AMBIEN [Concomitant]
     Indication: INSOMNIA
     Dosage: UNK
     Dates: start: 20080101
  3. FLAGYL [Concomitant]
     Dosage: 500 MG, BID
     Dates: start: 20081001
  4. DOXYCYCLINE [Concomitant]
     Dosage: UNK
     Dates: start: 20081001
  5. ROCEPHIN [Concomitant]
     Dosage: UNK
     Dates: start: 20081004
  6. PRINIVIL [Concomitant]
     Dosage: 10 MG, QD
     Route: 048
     Dates: start: 20081008
  7. GLUCOPHAGE [Concomitant]
     Indication: POLYCYSTIC OVARIES
     Dosage: 500 MG, BID
     Dates: start: 20050101
  8. DICYCLOMINE [Concomitant]
     Indication: ABDOMINAL PAIN
     Dosage: 10 MG, EVERY 6 HOURS, AS NEEDED
     Dates: start: 20081008
  9. MELATONIN [Concomitant]
     Dosage: 5 MG, QD
     Dates: start: 20081001
  10. OMNICEF [Concomitant]
     Dosage: 300 MG, BID
     Dates: start: 20081004
  11. CEFDINIR [Concomitant]
     Dosage: 300 MG, BID
     Dates: start: 20081008
  12. BENTYL [Concomitant]
     Dosage: UNK UNK, PRN
     Route: 048
     Dates: start: 20081008
  13. YASMIN [Suspect]
     Indication: CONTRACEPTION
     Dosage: UNK
     Dates: start: 20040101, end: 20090101
  14. CIPROFLOXACIN [Concomitant]
     Dosage: 500 MG, BID
     Dates: start: 20090919
  15. HYDROCODONE BITARTRATE AND ACETAMINOPHEN [Concomitant]
     Indication: PAIN
     Dosage: EVERY 4 HOURS, AS NEEDED
     Dates: start: 20081008
  16. CLARITIN [Concomitant]
     Dosage: 10 MG, QD
     Dates: start: 20090919
  17. PREDNISONE TAB [Concomitant]
     Dosage: UNK
     Dates: start: 20081001
  18. TRAMADOL HCL [Concomitant]
     Dosage: 50 MG, EVERY 6 HOURS, AS NEEDED
     Dates: start: 20090919
  19. FENTANYL [Concomitant]
     Dosage: 50 MCG/ML, PRN
     Dates: start: 20081008
  20. PROTONIX [Concomitant]
     Dosage: 40 MG, QD
     Dates: start: 20081001
  21. METFORMIN HCL [Concomitant]
     Dosage: 500 MG, BID
     Dates: start: 20081008
  22. COREG [Concomitant]
     Indication: PALPITATIONS
     Dosage: UNK UNK, BID
  23. CEFOXITIN [Concomitant]
     Dosage: 100 MG, QID
     Dates: start: 20081008
  24. YASMIN [Suspect]
  25. ASACOL [Concomitant]
     Indication: COLITIS MICROSCOPIC
     Dosage: 400 MG, QD
  26. LISINOPRIL [Concomitant]
     Dosage: 10 MG, QD
     Dates: start: 20081008
  27. METOPROLOL SUCCINATE [Concomitant]
     Dosage: 50 MG, UNK
  28. ORTHO TRI-CYCLEN LO [Concomitant]
     Dosage: UNK
     Dates: start: 20091001

REACTIONS (6)
  - SPHINCTER OF ODDI DYSFUNCTION [None]
  - CHOLECYSTITIS [None]
  - PAIN [None]
  - HEART RATE INCREASED [None]
  - SINUS TACHYCARDIA [None]
  - PALPITATIONS [None]
